FAERS Safety Report 16662109 (Version 1)
Quarter: 2019Q3

REPORT INFORMATION
  Report Type: Report from Study
  Country: US (occurrence: US)
  Receive Date: 20190802
  Receipt Date: 20190802
  Transmission Date: 20191004
  Serious: No
  Sender: FDA-Public Use
  Company Number: US-EXELIXIS-CABO-18017861

PATIENT
  Sex: Male
  Weight: 75.28 kg

DRUGS (17)
  1. FENTANYL. [Concomitant]
     Active Substance: FENTANYL
  2. LEVETIRACETAM. [Concomitant]
     Active Substance: LEVETIRACETAM
  3. LENVIMA [Concomitant]
     Active Substance: LENVATINIB
  4. CONSTULOSE [Concomitant]
     Active Substance: LACTULOSE
  5. VENTOLIN HFA [Concomitant]
     Active Substance: ALBUTEROL SULFATE
  6. INLYTA [Concomitant]
     Active Substance: AXITINIB
  7. DEXAMETHASONE. [Concomitant]
     Active Substance: DEXAMETHASONE
  8. SENNA [Concomitant]
     Active Substance: SENNA LEAF\SENNOSIDES\SENNOSIDES A AND B
  9. AMLODIPINE BESYLATE. [Concomitant]
     Active Substance: AMLODIPINE BESYLATE
  10. CABOMETYX [Suspect]
     Active Substance: CABOZANTINIB S-MALATE
     Indication: RENAL CANCER
     Dosage: 60 MG, QD
     Route: 048
     Dates: start: 20180628
  11. HYDROCODONE/ACETAMINOPHEN [Concomitant]
     Active Substance: ACETAMINOPHEN\HYDROCODONE
  12. AFINITOR [Concomitant]
     Active Substance: EVEROLIMUS
  13. BISCOLAX [Concomitant]
     Active Substance: BISACODYL
  14. TRIAMCINOLONE ACETONIDE. [Concomitant]
     Active Substance: TRIAMCINOLONE ACETONIDE
  15. HYDROMORPHONE HCL [Concomitant]
     Active Substance: HYDROMORPHONE HYDROCHLORIDE
  16. PANTOPRAZOLE SODIUM. [Concomitant]
     Active Substance: PANTOPRAZOLE SODIUM
  17. MULTIVITAMINS, COMBINATIONS [Concomitant]
     Active Substance: VITAMINS

REACTIONS (3)
  - Memory impairment [Unknown]
  - Constipation [Unknown]
  - Decreased appetite [Unknown]

NARRATIVE: CASE EVENT DATE: 2018
